FAERS Safety Report 7547869-X (Version None)
Quarter: 2011Q2

REPORT INFORMATION
  Report Type: 
  Country: None (occurrence: None)
  Receive Date: 20110615
  Receipt Date: 20110606
  Transmission Date: 20111010
  Serious: No
  Sender: FDA-Public Use
  Company Number: US-BIOGENIDEC-2011BI010005

PATIENT
  Age: 53 Year
  Sex: Female

DRUGS (3)
  1. AVONEX [Concomitant]
     Indication: MULTIPLE SCLEROSIS
     Route: 030
     Dates: start: 20051020
  2. AVONEX [Concomitant]
     Route: 030
     Dates: start: 20071001
  3. TYSABRI [Suspect]
     Indication: MULTIPLE SCLEROSIS
     Route: 042
     Dates: start: 20101221

REACTIONS (5)
  - FALL [None]
  - CONCUSSION [None]
  - HEAD INJURY [None]
  - HYPERSENSITIVITY [None]
  - VEIN DISORDER [None]
